FAERS Safety Report 4297053-0 (Version None)
Quarter: 2004Q1

REPORT INFORMATION
  Report Type: 
  Country: None (occurrence: None)
  Receive Date: 20040126
  Receipt Date: 20030915
  Transmission Date: 20041129
  Serious: No
  Sender: FDA-Public Use
  Company Number: USA030947285

PATIENT
  Age: 10 Year
  Sex: Male
  Weight: 30 kg

DRUGS (4)
  1. STRATTERA [Suspect]
     Indication: ATTENTION DEFICIT/HYPERACTIVITY DISORDER
     Dosage: 18 MG/DAY
     Dates: start: 20030915
  2. RITALIN [Concomitant]
  3. SEREVENT [Concomitant]
  4. FLONASE [Concomitant]

REACTIONS (4)
  - ANXIETY [None]
  - CRYING [None]
  - DEPRESSION [None]
  - HEADACHE [None]
